FAERS Safety Report 4372175-4 (Version None)
Quarter: 2004Q2

REPORT INFORMATION
  Report Type: 
  Country: None (occurrence: None)
  Receive Date: 20040607
  Receipt Date: 20040420
  Transmission Date: 20050107
  Serious: Yes (Hospitalization)
  Sender: FDA-Public Use
  Company Number: 2004JP000847

PATIENT
  Age: 78 Year
  Sex: Female
  Weight: 57 kg

DRUGS (3)
  1. SAWACILLIN [Suspect]
     Indication: PROPHYLAXIS
     Dosage: 250MG THREE TIMES PER DAY
     Route: 048
     Dates: start: 20040410, end: 20040410
  2. IBUPROFEN [Suspect]
     Dosage: 200MG PER DAY
     Route: 048
     Dates: start: 20040410, end: 20040410
  3. LACTOBACILLUS BIFIDUS [Concomitant]
     Dates: start: 20040410, end: 20040410

REACTIONS (3)
  - PRURITUS [None]
  - RASH [None]
  - TOXIC SKIN ERUPTION [None]
